FAERS Safety Report 19950622 (Version 1)
Quarter: 2021Q4

REPORT INFORMATION
  Report Type: Spontaneous
  Country: US (occurrence: US)
  Receive Date: 20211014
  Receipt Date: 20211014
  Transmission Date: 20220303
  Serious: Yes (Hospitalization, Other)
  Sender: FDA-Public Use
  Company Number: US-UCBSA-2021047259

PATIENT
  Sex: Male

DRUGS (1)
  1. VIMPAT [Suspect]
     Active Substance: LACOSAMIDE
     Indication: Petit mal epilepsy
     Dosage: 200 MILLIGRAM, 2X/DAY (BID)

REACTIONS (4)
  - Seizure [Unknown]
  - Petit mal epilepsy [Unknown]
  - Therapy interrupted [Unknown]
  - Product availability issue [Unknown]
